FAERS Safety Report 22046857 (Version 1)
Quarter: 2023Q1

REPORT INFORMATION
  Report Type: Spontaneous
  Country: BR (occurrence: BR)
  Receive Date: 20230228
  Receipt Date: 20230228
  Transmission Date: 20230418
  Serious: Yes (Hospitalization, Other)
  Sender: FDA-Public Use
  Company Number: BR-SUN PHARMACEUTICAL INDUSTRIES LTD-2023R1-379966

PATIENT
  Age: 47 Year
  Sex: Male
  Weight: 95 kg

DRUGS (5)
  1. TEMOZOLOMIDE [Suspect]
     Active Substance: TEMOZOLOMIDE
     Indication: Brain neoplasm
     Dosage: 300 MILLIGRAM, QD
     Route: 048
     Dates: start: 202106
  2. DEXAMETHASONE [Concomitant]
     Active Substance: DEXAMETHASONE
     Indication: Seizure
     Dosage: 4 MILLIGRAM (1 TABLET 2X A DAY)
     Route: 065
  3. Enavo [Concomitant]
     Indication: Nausea
     Dosage: 8 MILLIGRAM (1 TABT 1X A DAY)
     Route: 065
  4. LEVETIRACETAM [Concomitant]
     Active Substance: LEVETIRACETAM
     Indication: Seizure
     Dosage: 50 MILLIGRAM (1 TABLET 2X A DAY)
     Route: 065
  5. PHENOBARBITAL [Concomitant]
     Active Substance: PHENOBARBITAL
     Indication: Seizure
     Dosage: 100 MILLIGRAM (1 TABLET AT NIGHT)
     Route: 065

REACTIONS (1)
  - Seizure [Recovered/Resolved]

NARRATIVE: CASE EVENT DATE: 20230206
